FAERS Safety Report 14988321 (Version 1)
Quarter: 2018Q2

REPORT INFORMATION
  Report Type: Spontaneous
  Country: US (occurrence: US)
  Receive Date: 20180608
  Receipt Date: 20180608
  Transmission Date: 20180711
  Serious: No
  Sender: FDA-Public Use
  Company Number: US-SA-2018SA091059

PATIENT
  Age: 53 Year
  Sex: Male

DRUGS (27)
  1. PHENAZOPYRIDINE HCL [Concomitant]
     Active Substance: PHENAZOPYRIDINE HYDROCHLORIDE
     Dosage: 200 MG, TID
     Route: 048
     Dates: start: 20180307, end: 20180313
  2. LEVOXYL [Concomitant]
     Active Substance: LEVOTHYROXINE SODIUM
     Dosage: 75 , UNK
     Route: 048
     Dates: start: 20180410
  3. CIPRODEX [CIPROFLOXACIN HYDROCHLORIDE;DEXAMETHASONE] [Concomitant]
     Dosage: UNK
     Dates: start: 20180423, end: 20180503
  4. PURALUBE [MINERAL OIL LIGHT;WHITE SOFT PARAFFIN] [Concomitant]
     Dosage: 1
     Dates: start: 20180305, end: 20180307
  5. PURALUBE [MINERAL OIL LIGHT;WHITE SOFT PARAFFIN] [Concomitant]
     Dosage: 1
     Dates: start: 20180410
  6. ARTIFICIAL TEARS [POLYVINYL ALCOHOL] [Concomitant]
     Dosage: UNK UNK, PRN
     Route: 047
     Dates: start: 20180410
  7. ZANTAC [Concomitant]
     Active Substance: RANITIDINE HYDROCHLORIDE
     Dosage: 25 MG/ML
     Dates: start: 20180314, end: 20180319
  8. ZANTAC [Concomitant]
     Active Substance: RANITIDINE HYDROCHLORIDE
     Dosage: 25 MG/ML
     Dates: start: 20180319, end: 20180319
  9. AUGMENTINE [AMOXICILLIN SODIUM;CLAVULANATE POTASSIUM] [Concomitant]
     Dosage: 1 DF(TABLET)
     Route: 048
     Dates: start: 20180322, end: 20180601
  10. LISINOPRIL. [Concomitant]
     Active Substance: LISINOPRIL
     Dosage: 10 MG, QD
     Route: 048
     Dates: start: 20180209, end: 20180410
  11. DIPHENHYDRAMINE HCL [Concomitant]
     Active Substance: DIPHENHYDRAMINE HYDROCHLORIDE
     Dosage: 50 MG/ML
     Dates: start: 20180321, end: 20180322
  12. ZANTAC [Concomitant]
     Active Substance: RANITIDINE HYDROCHLORIDE
     Dosage: 150 MG, PRN
     Dates: start: 20180111, end: 20180410
  13. TEGRETOL [Concomitant]
     Active Substance: CARBAMAZEPINE
     Dosage: 200 MG, BID
     Route: 048
     Dates: start: 20180410
  14. ARTIFICIAL TEARS [POLYVINYL ALCOHOL] [Concomitant]
     Dosage: UNK UNK, PRN
     Route: 047
     Dates: start: 20180111, end: 20180410
  15. PURALUBE [MINERAL OIL LIGHT;WHITE SOFT PARAFFIN] [Concomitant]
     Dosage: 1
     Dates: start: 20180307, end: 20180410
  16. SOLU-MEDROL [Concomitant]
     Active Substance: METHYLPREDNISOLONE SODIUM SUCCINATE
     Dosage: 125 MG
     Dates: start: 20180321, end: 20180322
  17. TEGRETOL [Concomitant]
     Active Substance: CARBAMAZEPINE
     Dosage: 200 MG, BID
     Route: 048
     Dates: start: 20180209, end: 20180410
  18. PROSCAR [Concomitant]
     Active Substance: FINASTERIDE
     Dosage: UNK
     Dates: start: 20180313, end: 20180313
  19. DIPHENHYDRAMINE HCL [Concomitant]
     Active Substance: DIPHENHYDRAMINE HYDROCHLORIDE
     Dosage: 50 MG/ML
     Dates: start: 20180314, end: 20180314
  20. DEXAMETHASONE SODIUM [Concomitant]
     Dosage: 4 MG/ML
     Dates: start: 20180314, end: 20180314
  21. FABRAZYME [Suspect]
     Active Substance: AGALSIDASE BETA
     Indication: FABRY^S DISEASE
     Dosage: 75 MG,QOW
     Route: 041
     Dates: start: 20180319
  22. LEVOFLOXACIN. [Concomitant]
     Active Substance: LEVOFLOXACIN
     Dosage: 250 MG
     Route: 048
     Dates: start: 20180307, end: 20180313
  23. PREDNISOLONE. [Concomitant]
     Active Substance: PREDNISOLONE
     Dosage: 20 MG, QD
     Route: 048
     Dates: start: 20180322, end: 20180327
  24. LISINOPRIL. [Concomitant]
     Active Substance: LISINOPRIL
     Dosage: 10 MG, QD
     Route: 048
     Dates: start: 20180410
  25. MAGNESIUM CITRATE. [Concomitant]
     Active Substance: MAGNESIUM CITRATE
     Dosage: 1 BOTTLE
     Dates: start: 20180111, end: 20180307
  26. PURALUBE [MINERAL OIL LIGHT;WHITE SOFT PARAFFIN] [Concomitant]
     Dosage: UNK
  27. LEVOXYL [Concomitant]
     Active Substance: LEVOTHYROXINE SODIUM
     Dosage: 75 , UNK
     Route: 048
     Dates: start: 20180209, end: 20180410

REACTIONS (3)
  - Neck mass [Recovered/Resolved]
  - Dysphagia [Recovered/Resolved]
  - Pain [Recovered/Resolved]

NARRATIVE: CASE EVENT DATE: 20180320
